FAERS Safety Report 23566148 (Version 1)
Quarter: 2024Q1

REPORT INFORMATION
  Report Type: Spontaneous
  Country: US (occurrence: None)
  Receive Date: 20240223
  Receipt Date: 20240223
  Transmission Date: 20240409
  Serious: Yes (Other)
  Sender: FDA-Public Use
  Company Number: None

PATIENT

DRUGS (1)
  1. DELADUMONE [Suspect]
     Active Substance: ESTRADIOL VALERATE\TESTOSTERONE ENANTHATE

REACTIONS (2)
  - General physical condition abnormal [None]
  - Product administered to patient of inappropriate age [None]
